FAERS Safety Report 7032172-7 (Version None)
Quarter: 2010Q4

REPORT INFORMATION
  Report Type: 
  Country: None (occurrence: None)
  Receive Date: 20101007
  Receipt Date: 20100120
  Transmission Date: 20110411
  Serious: Yes (Hospitalization)
  Sender: FDA-Public Use
  Company Number: US-BRISTOL-MYERS SQUIBB COMPANY-14953038

PATIENT
  Age: 61 Year
  Sex: Male
  Weight: 80 kg

DRUGS (8)
  1. CETUXIMAB [Suspect]
     Indication: TRANSITIONAL CELL CARCINOMA
     Dosage: 35.7143MG/M2 RECENT INF:13JAN10
     Route: 042
     Dates: start: 20091007, end: 20100113
  2. CISPLATIN [Suspect]
     Indication: TRANSITIONAL CELL CARCINOMA
     Dosage: RECENT INF:29DEC09
     Route: 042
     Dates: start: 20091007, end: 20091229
  3. GEMCITABINE [Suspect]
     Indication: TRANSITIONAL CELL CARCINOMA
     Dosage: RECENT INF:06JAN10
     Route: 042
     Dates: start: 20091007, end: 20100106
  4. LORTAB [Concomitant]
  5. METOPROLOL TARTRATE [Concomitant]
     Indication: HYPERTENSION
  6. ASPIRIN [Concomitant]
  7. TYLENOL [Concomitant]
  8. AMLODIPINE [Concomitant]
     Indication: HYPERTENSION

REACTIONS (4)
  - CEREBRAL ISCHAEMIA [None]
  - FIBRIN D DIMER INCREASED [None]
  - HAEMOGLOBIN DECREASED [None]
  - PLATELET COUNT DECREASED [None]
